FAERS Safety Report 4893666-3 (Version None)
Quarter: 2006Q1

REPORT INFORMATION
  Report Type: 
  Country: None (occurrence: None)
  Receive Date: 20060127
  Receipt Date: 20051017
  Transmission Date: 20060701
  Serious: Yes (Other)
  Sender: FDA-Public Use
  Company Number: 200513613EU

PATIENT
  Age: 48 Year
  Sex: Female

DRUGS (15)
  1. NICORETTE [Suspect]
     Indication: STRESS
     Route: 002
     Dates: start: 20020206, end: 20060112
  2. VITAMIN E [Concomitant]
  3. ASPIRIN [Concomitant]
  4. CALCIUM GLUCONATE [Concomitant]
  5. VITAMIN D [Concomitant]
  6. HALIBUT LIVER OIL [Concomitant]
     Dates: start: 19910101
  7. ASCORBIC ACID [Concomitant]
  8. LIOTHYRONINE SODIUM [Concomitant]
     Indication: THYROID DISORDER
  9. TOPAMAX [Concomitant]
     Indication: EPILEPSY
     Dates: start: 19990101
  10. GABAPENTIN [Concomitant]
     Indication: BIPOLAR DISORDER
     Dates: start: 20050901
  11. QUETIAPINE FUMARATE [Concomitant]
     Indication: BIPOLAR DISORDER
     Dates: start: 20020101
  12. DYAZIDE [Concomitant]
     Indication: DIURETIC THERAPY
     Dates: start: 20050901
  13. CLONAZEPAM [Concomitant]
     Dates: start: 19780101
  14. METHOCARBAMOL [Concomitant]
     Indication: FIBROMYALGIA
     Dates: start: 20010101
  15. OXYCODONE [Concomitant]
     Indication: FIBROMYALGIA
     Dates: start: 20010101

REACTIONS (8)
  - ABDOMINAL DISTENSION [None]
  - BREAST CANCER [None]
  - DEPENDENCE [None]
  - DRUG DEPENDENCE [None]
  - DYSPNOEA [None]
  - MEDICATION ERROR [None]
  - NAUSEA [None]
  - OVERDOSE [None]
